FAERS Safety Report 9265081 (Version 1)
Quarter: 2013Q2

REPORT INFORMATION
  Report Type: Spontaneous
  Country: CO (occurrence: None)
  Receive Date: 20130429
  Receipt Date: 20130429
  Transmission Date: 20140414
  Serious: Yes (Death)
  Sender: FDA-Public Use
  Company Number: CO-JNJFOC-20130413900

PATIENT
  Age: 84 Year
  Sex: Male

DRUGS (1)
  1. DACOGEN (DECITABINE) LYOPHILIZED POWDER [Suspect]
     Indication: MYELODYSPLASTIC SYNDROME
     Route: 042
     Dates: start: 201302, end: 201302

REACTIONS (1)
  - Death [None]
